FAERS Safety Report 8659984 (Version 2)
Quarter: 2012Q4

REPORT INFORMATION
  Report Type: 
  Country: FI (occurrence: FI)
  Receive Date: 20120711
  Receipt Date: 20120822
  Transmission Date: 20130627
  Serious: No
  Sender: FDA-Public Use
  Company Number: FI-ELI_LILLY_AND_COMPANY-FI201206002177

PATIENT
  Age: 79 Year
  Sex: Female

DRUGS (4)
  1. FORSTEO [Suspect]
     Indication: OSTEOPOROSIS
     Dosage: 20 ug, qd
     Route: 058
     Dates: start: 20120530
  2. TRAMAL [Concomitant]
     Indication: PAIN
     Dosage: 100 mg, bid
  3. DUROGESIC [Concomitant]
     Indication: PAIN
     Dosage: 12 UNK, UNK
  4. PRIMPERAN [Concomitant]

REACTIONS (12)
  - Micturition urgency [Unknown]
  - Erythema [Unknown]
  - Nausea [Unknown]
  - Dizziness [Unknown]
  - Headache [Unknown]
  - Pain in extremity [Unknown]
  - Myalgia [Unknown]
  - Swelling face [Unknown]
  - Flank pain [Unknown]
  - Abdominal pain upper [Unknown]
  - Eructation [Unknown]
  - Anxiety [Unknown]
